FAERS Safety Report 16869859 (Version 1)
Quarter: 2019Q3

REPORT INFORMATION
  Report Type: Spontaneous
  Country: NL (occurrence: NL)
  Receive Date: 20190930
  Receipt Date: 20190930
  Transmission Date: 20191005
  Serious: Yes (Other)
  Sender: FDA-Public Use
  Company Number: NL-MYLANLABS-2019M1090706

PATIENT
  Sex: Female

DRUGS (2)
  1. ISOTRETINOIN. [Suspect]
     Active Substance: ISOTRETINOIN
     Indication: ACNE
     Dosage: 1 DOSAGE FORM, QD (1X PER DAG)
     Route: 003
     Dates: start: 2019, end: 201904
  2. TRECLINAC [Concomitant]
     Dosage: 1 DD

REACTIONS (2)
  - Infection susceptibility increased [Recovering/Resolving]
  - Infection [Recovering/Resolving]
